FAERS Safety Report 6303779-7 (Version None)
Quarter: 2009Q3

REPORT INFORMATION
  Report Type: 
  Country: None (occurrence: None)
  Receive Date: 20090805
  Receipt Date: 20090720
  Transmission Date: 20100115
  Serious: No
  Sender: FDA-Public Use
  Company Number: US-1170325

PATIENT
  Age: 14 Year
  Sex: Female

DRUGS (3)
  1. PATANASE [Suspect]
     Indication: HYPERSENSITIVITY
     Dosage: (NASAL)
     Route: 045
  2. ALLEGRA D 24 HOUR [Concomitant]
  3. NASONEX [Concomitant]

REACTIONS (1)
  - DEPRESSION [None]
